FAERS Safety Report 5541570-X (Version None)
Quarter: 2007Q4

REPORT INFORMATION
  Report Type: 
  Country: None (occurrence: None)
  Receive Date: 20071210
  Receipt Date: 20071130
  Transmission Date: 20080405
  Serious: Yes (Hospitalization)
  Sender: FDA-Public Use
  Company Number: PHBS2007JP19596

PATIENT
  Age: 3 Month
  Sex: Male

DRUGS (4)
  1. DIAZOXIDE [Concomitant]
     Dosage: 20 MG/KG/D
     Route: 042
  2. GLUCOSE [Concomitant]
     Indication: HYPOGLYCAEMIA
  3. HYDROCORTISONE [Concomitant]
     Indication: HYPOGLYCAEMIA
  4. SANDOSTATIN [Suspect]
     Dosage: 5 UG/KG/D
     Route: 042

REACTIONS (3)
  - ADRENAL INSUFFICIENCY [None]
  - HYPOTHYROIDISM [None]
  - RESPIRATORY FAILURE [None]
